FAERS Safety Report 9979651 (Version 2)
Quarter: 2014Q1

REPORT INFORMATION
  Report Type: Report from Study
  Country: US (occurrence: US)
  Receive Date: 20140306
  Receipt Date: 20140306
  Transmission Date: 20141002
  Serious: No
  Sender: FDA-Public Use
  Company Number: US-ABBVIE-13P-163-1154650-00

PATIENT
  Age: 52 Year
  Sex: Female

DRUGS (8)
  1. HUMIRA [Suspect]
     Indication: PSORIASIS
     Dates: start: 20130912
  2. HUMIRA [Suspect]
     Dates: start: 20130919
  3. METFORMIN [Concomitant]
     Indication: DIABETES MELLITUS
     Dosage: 1000 MG DAILY
  4. GEMFIBROZIL [Concomitant]
     Indication: DIABETES MELLITUS
     Dosage: 600 MG DAILY
  5. VITAMIN B-6 [Concomitant]
     Indication: PRODUCT USED FOR UNKNOWN INDICATION
     Dosage: 2 TABS DAILY
  6. FISH OIL [Concomitant]
     Indication: PRODUCT USED FOR UNKNOWN INDICATION
     Dosage: 2 TABS DAILY
  7. VITAMIN D [Concomitant]
     Indication: PRODUCT USED FOR UNKNOWN INDICATION
     Dosage: 2 TABS DAILY
  8. ISONIAZID [Concomitant]
     Indication: TUBERCULOSIS
     Dosage: 300 MG DAILY

REACTIONS (2)
  - Tuberculosis [Not Recovered/Not Resolved]
  - Herpes virus infection [Recovered/Resolved]
